FAERS Safety Report 17516975 (Version 5)
Quarter: 2021Q2

REPORT INFORMATION
  Report Type: Report from Study
  Country: RU (occurrence: RU)
  Receive Date: 20200309
  Receipt Date: 20210504
  Transmission Date: 20210716
  Serious: Yes (Hospitalization)
  Sender: FDA-Public Use
  Company Number: RU-EISAI MEDICAL RESEARCH-EC-2020-071413

PATIENT
  Age: 70 Year
  Sex: Female
  Weight: 65 kg

DRUGS (7)
  1. LENVATINIB [Suspect]
     Active Substance: LENVATINIB
     Route: 048
     Dates: start: 20200221, end: 20200229
  2. METOPROLOL. [Concomitant]
     Active Substance: METOPROLOL
     Dates: start: 20191126
  3. PEMBROLIZUMAB. [Suspect]
     Active Substance: PEMBROLIZUMAB
     Indication: ENDOMETRIAL CANCER RECURRENT
     Route: 041
     Dates: start: 20190924, end: 20200130
  4. PEMBROLIZUMAB. [Suspect]
     Active Substance: PEMBROLIZUMAB
     Route: 041
     Dates: start: 20200312
  5. LENVATINIB [Suspect]
     Active Substance: LENVATINIB
     Indication: ENDOMETRIAL CANCER RECURRENT
     Dosage: STARTING DOSE AT: 20MG; FLUCTUATED DOSAGE
     Route: 048
     Dates: start: 20190924, end: 20200220
  6. LENVATINIB [Suspect]
     Active Substance: LENVATINIB
     Route: 048
     Dates: start: 20200312
  7. PEMBROLIZUMAB. [Suspect]
     Active Substance: PEMBROLIZUMAB
     Route: 041
     Dates: start: 20200220, end: 20200220

REACTIONS (1)
  - Haemoptysis [Recovered/Resolved]

NARRATIVE: CASE EVENT DATE: 20200229
